FAERS Safety Report 4819114-7 (Version None)
Quarter: 2005Q4

REPORT INFORMATION
  Report Type: 
  Country: None (occurrence: None)
  Receive Date: 20051101
  Receipt Date: 20050915
  Transmission Date: 20060501
  Serious: Yes (Other)
  Sender: FDA-Public Use
  Company Number: 2005-08-0380

PATIENT
  Age: 33 Year
  Sex: Female

DRUGS (5)
  1. PEG-INTRON [Suspect]
     Indication: HEPATITIS C
     Dosage: 120-75 MCG SUBCUTANEOUS
     Route: 058
     Dates: start: 20050701, end: 20050801
  2. PEG-INTRON [Suspect]
     Indication: HEPATITIS C
     Dosage: 120-75 MCG SUBCUTANEOUS
     Route: 058
     Dates: start: 20050701
  3. PEG-INTRON [Suspect]
     Indication: HEPATITIS C
     Dosage: 120-75 MCG SUBCUTANEOUS
     Route: 058
     Dates: start: 20050801
  4. REBETOL [Suspect]
     Indication: HEPATITIS C
     Dosage: 800 MG QD ORAL
     Route: 048
     Dates: start: 20050701
  5. DESFERAL [Concomitant]

REACTIONS (6)
  - ALANINE AMINOTRANSFERASE INCREASED [None]
  - ALOPECIA [None]
  - ASPARTATE AMINOTRANSFERASE INCREASED [None]
  - PLATELET COUNT DECREASED [None]
  - WEIGHT DECREASED [None]
  - WHITE BLOOD CELL COUNT DECREASED [None]
